FAERS Safety Report 8971174 (Version 1)
Quarter: 2012Q4

REPORT INFORMATION
  Report Type: 
  Country: US (occurrence: US)
  Receive Date: 20121218
  Receipt Date: 20121218
  Transmission Date: 20130627
  Serious: Yes (Hospitalization, Other)
  Sender: FDA-Public Use
  Company Number: US-TEVA-370947USA

PATIENT
  Sex: Female

DRUGS (2)
  1. CLARAVIS [Suspect]
     Dates: start: 20121013, end: 20121112
  2. MOTRIN [Suspect]
     Indication: ACNE

REACTIONS (1)
  - Overdose [Recovered/Resolved]
